FAERS Safety Report 9870617 (Version 2)
Quarter: 2014Q1

REPORT INFORMATION
  Report Type: Report from Study
  Country: BR (occurrence: BR)
  Receive Date: 20140205
  Receipt Date: 20140304
  Transmission Date: 20141002
  Serious: Yes (Hospitalization, Other)
  Sender: FDA-Public Use
  Company Number: PHHY2014BR011730

PATIENT
  Age: 55 Year
  Sex: Female
  Weight: 52 kg

DRUGS (4)
  1. SANDOSTATIN LAR [Suspect]
     Indication: NEUROENDOCRINE TUMOUR
     Dosage: UNK UKN, UNK
     Dates: start: 20130123
  2. SELOZOK [Concomitant]
     Dosage: UNK UKN, UNK
     Dates: start: 2012
  3. ATORVASTATIN [Concomitant]
     Dosage: UNK UKN, UNK
     Dates: start: 201302
  4. MAREVAN [Concomitant]
     Dosage: UNK UKN, UNK
     Dates: start: 2011

REACTIONS (2)
  - Cerebrovascular accident [Recovered/Resolved]
  - Feeling hot [Not Recovered/Not Resolved]
